FAERS Safety Report 16676844 (Version 2)
Quarter: 2019Q3

REPORT INFORMATION
  Report Type: Spontaneous
  Country: US (occurrence: US)
  Receive Date: 20190807
  Receipt Date: 20190807
  Transmission Date: 20191004
  Serious: Yes (Hospitalization, Other)
  Sender: FDA-Public Use
  Company Number: US-CELGENEUS-USA-20190710641

PATIENT
  Age: 70 Year
  Sex: Male

DRUGS (1)
  1. REVLIMID [Suspect]
     Active Substance: LENALIDOMIDE
     Indication: PLASMA CELL MYELOMA
     Dosage: 5 MILLIGRAM
     Route: 048
     Dates: start: 20190502

REACTIONS (4)
  - Pneumonia [Not Recovered/Not Resolved]
  - Fall [Not Recovered/Not Resolved]
  - Upper limb fracture [Not Recovered/Not Resolved]
  - Upper limb fracture [Not Recovered/Not Resolved]

NARRATIVE: CASE EVENT DATE: 201906
